FAERS Safety Report 8034503-8 (Version None)
Quarter: 2012Q1

REPORT INFORMATION
  Report Type: 
  Country: None (occurrence: None)
  Receive Date: 20120110
  Receipt Date: 20111221
  Transmission Date: 20120608
  Serious: Yes (Other)
  Sender: FDA-Public Use
  Company Number: JP-PFIZER INC-2011309399

PATIENT
  Age: 84 Year
  Sex: Male

DRUGS (1)
  1. NORVASC [Suspect]
     Dosage: UNK
     Route: 048

REACTIONS (7)
  - OEDEMA [None]
  - VENTRICULAR FIBRILLATION [None]
  - HYPOAESTHESIA [None]
  - MUSCLE SPASMS [None]
  - DIARRHOEA [None]
  - PLATELET COUNT DECREASED [None]
  - PURPURA [None]
